FAERS Safety Report 11834098 (Version 1)
Quarter: 2015Q4

REPORT INFORMATION
  Report Type: Spontaneous
  Country: FR (occurrence: FR)
  Receive Date: 20151214
  Receipt Date: 20151214
  Transmission Date: 20160305
  Serious: Yes (Hospitalization, Other)
  Sender: FDA-Public Use
  Company Number: FR-GILEAD-2015-0186724

PATIENT
  Age: 69 Year
  Sex: Male

DRUGS (17)
  1. ZYDELIG [Suspect]
     Active Substance: IDELALISIB
     Dosage: UNK
     Route: 048
     Dates: start: 20150722, end: 20150805
  2. ZYDELIG [Suspect]
     Active Substance: IDELALISIB
     Dosage: UNK
     Route: 048
     Dates: start: 20150821, end: 20150928
  3. MABTHERA [Suspect]
     Active Substance: RITUXIMAB
     Dosage: UNK
     Route: 065
     Dates: start: 20150413, end: 20150615
  4. DOLIPRANE [Concomitant]
     Active Substance: ACETAMINOPHEN
  5. VANCOMYCINE [Concomitant]
     Active Substance: VANCOMYCIN
  6. FUNGIZONE [Concomitant]
     Active Substance: AMPHOTERICIN B
  7. MOVICOL [Concomitant]
     Active Substance: POLYETHYLENE GLYCOL 3350\POTASSIUM CHLORIDE\SODIUM BICARBONATE\SODIUM CHLORIDE
  8. LAROXYL [Concomitant]
     Active Substance: AMITRIPTYLINE
  9. ZYDELIG [Suspect]
     Active Substance: IDELALISIB
     Indication: CHRONIC LYMPHOCYTIC LEUKAEMIA
     Dosage: UNK
     Route: 048
     Dates: start: 20150413, end: 20150615
  10. MABTHERA [Suspect]
     Active Substance: RITUXIMAB
     Indication: CHRONIC LYMPHOCYTIC LEUKAEMIA
     Dosage: UNK
     Route: 065
     Dates: start: 20150401
  11. ZOVIRAX [Concomitant]
     Active Substance: ACYCLOVIR
  12. MABTHERA [Suspect]
     Active Substance: RITUXIMAB
     Dosage: UNK
     Route: 065
     Dates: start: 201507, end: 20150713
  13. MECIR [Concomitant]
     Active Substance: TAMSULOSIN HYDROCHLORIDE
  14. CETIRIZINE [Concomitant]
     Active Substance: CETIRIZINE HYDROCHLORIDE
  15. MABTHERA [Suspect]
     Active Substance: RITUXIMAB
     Dosage: UNK
     Route: 065
     Dates: start: 20150821, end: 20150928
  16. ZYDELIG [Suspect]
     Active Substance: IDELALISIB
     Dosage: UNK
     Route: 048
     Dates: start: 201507, end: 20150713
  17. HYDROCORTISONE. [Concomitant]
     Active Substance: HYDROCORTISONE

REACTIONS (4)
  - Lymphopenia [Recovered/Resolved]
  - Thrombocytopenia [Recovering/Resolving]
  - Neutropenia [Recovering/Resolving]
  - Infection susceptibility increased [Recovered/Resolved]

NARRATIVE: CASE EVENT DATE: 20150713
